FAERS Safety Report 11442401 (Version 2)
Quarter: 2015Q3

REPORT INFORMATION
  Report Type: Report from Study
  Country: US (occurrence: US)
  Receive Date: 20150901
  Receipt Date: 20150914
  Transmission Date: 20151125
  Serious: Yes (Hospitalization)
  Sender: FDA-Public Use
  Company Number: US-ACTELION-A-US2015-122353

PATIENT
  Age: 62 Year
  Sex: Female

DRUGS (1)
  1. MACITENTAN [Suspect]
     Active Substance: MACITENTAN
     Indication: PULMONARY ARTERIAL HYPERTENSION
     Dosage: 10 MG, QD
     Route: 048
     Dates: start: 20150622

REACTIONS (9)
  - Dizziness [Unknown]
  - Respiratory tract congestion [Unknown]
  - Anxiety [Unknown]
  - Hypertension [Unknown]
  - Balance disorder [Unknown]
  - Atrial fibrillation [Unknown]
  - Vertigo [Unknown]
  - Nasal congestion [Unknown]
  - Tinnitus [Unknown]

NARRATIVE: CASE EVENT DATE: 20150629
